FAERS Safety Report 21972882 (Version 2)
Quarter: 2023Q1

REPORT INFORMATION
  Report Type: Report from Study
  Country: AU (occurrence: AU)
  Receive Date: 20230209
  Receipt Date: 20230223
  Transmission Date: 20230418
  Serious: Yes (Hospitalization)
  Sender: FDA-Public Use
  Company Number: AU-PFIZER INC-PV202300019424

PATIENT
  Age: 54 Year
  Sex: Male

DRUGS (12)
  1. LEUCOVORIN [Suspect]
     Active Substance: LEUCOVORIN
     Indication: Detoxification
     Dosage: 780 MG, EVERY 2 WEEKS
     Route: 042
     Dates: start: 20230113
  2. ADRUCIL [Suspect]
     Active Substance: FLUOROURACIL
     Indication: Prophylaxis
     Dosage: 6250 MG, EVERY 2 WEEKS
     Route: 042
     Dates: start: 20230113
  3. CAMPTOSAR [Suspect]
     Active Substance: IRINOTECAN HYDROCHLORIDE
     Indication: Neoplasm
     Dosage: 320 MG, EVERY 2 WEEKS
     Route: 042
     Dates: start: 20230113
  4. AVASTIN [Suspect]
     Active Substance: BEVACIZUMAB
     Indication: Monoclonal antibody unconjugated therapy
     Dosage: 387.5 MG, EVERY 2 WEEKS
     Route: 042
     Dates: start: 20230113
  5. OXALIPLATIN [Suspect]
     Active Substance: OXALIPLATIN
     Indication: Neoplasm
     Dosage: 165 MG,  EVERY 2 WEEKS
     Route: 042
     Dates: start: 20230113
  6. EZETIMIBE [Concomitant]
     Active Substance: EZETIMIBE
     Indication: Cardiovascular disorder
     Dosage: UNK, MG DAILY
     Route: 048
     Dates: start: 202208
  7. ASPIRIN [Concomitant]
     Active Substance: ASPIRIN
     Dosage: UNK MG, DAILY
     Route: 048
     Dates: start: 2015
  8. BOWELBIOTICS ADVANCED DIGESTIVE ENZYMES [Concomitant]
     Dosage: BOWEL BIOTIC, UNK, DAILY
     Route: 048
     Dates: start: 202212
  9. NUTRA LIFE COQ10 [Concomitant]
     Indication: Supplementation therapy
     Dosage: UNK, DAILY
     Route: 048
  10. ASCORBIC ACID/VITAMIN D NOS [Concomitant]
     Indication: Vitamin supplementation
     Dosage: UNK, DAILY
     Route: 048
  11. MAXOLON [Concomitant]
     Active Substance: METOCLOPRAMIDE HYDROCHLORIDE
     Indication: Nausea
     Dosage: UNK, AS NEEDED
     Route: 048
     Dates: start: 20230114
  12. LOPERAMIDE [Concomitant]
     Active Substance: LOPERAMIDE
     Indication: Diarrhoea
     Dosage: UNK, AS NEEDED
     Route: 048

REACTIONS (1)
  - Febrile neutropenia [Recovered/Resolved]

NARRATIVE: CASE EVENT DATE: 20230128
